FAERS Safety Report 7238758-9 (Version None)
Quarter: 2011Q1

REPORT INFORMATION
  Report Type: 
  Country: None (occurrence: None)
  Receive Date: 20110121
  Receipt Date: 20110118
  Transmission Date: 20110831
  Serious: Yes (Hospitalization)
  Sender: FDA-Public Use
  Company Number: CL-ABBOTT-11P-034-0695342-00

PATIENT
  Sex: Female
  Weight: 70 kg

DRUGS (7)
  1. HUMIRA [Suspect]
     Indication: RHEUMATOID ARTHRITIS
     Route: 058
     Dates: start: 20101111, end: 20101230
  2. CELECOXIB [Concomitant]
     Indication: RHEUMATOID ARTHRITIS
     Route: 048
     Dates: start: 20101217, end: 20101230
  3. DEFLAZACORT [Concomitant]
     Indication: RHEUMATOID ARTHRITIS
     Route: 048
     Dates: start: 20100601, end: 20101230
  4. ANALGESICS [Concomitant]
     Indication: PRODUCT USED FOR UNKNOWN INDICATION
  5. MUSCLE RELAXANTS [Concomitant]
     Indication: PRODUCT USED FOR UNKNOWN INDICATION
  6. KETOPROPHEN [Concomitant]
     Indication: RHEUMATOID ARTHRITIS
     Route: 048
     Dates: start: 20101217, end: 20101230
  7. HUMIRA [Suspect]
     Route: 058
     Dates: start: 20101111, end: 20101230

REACTIONS (2)
  - PANCREATITIS [None]
  - DISCOMFORT [None]
